FAERS Safety Report 21075378 (Version 1)
Quarter: 2022Q3

REPORT INFORMATION
  Report Type: Spontaneous
  Country: CN (occurrence: CN)
  Receive Date: 20220713
  Receipt Date: 20220713
  Transmission Date: 20221027
  Serious: Yes (Other)
  Sender: FDA-Public Use
  Company Number: None

PATIENT
  Age: 47 Year
  Sex: Female
  Weight: 69 kg

DRUGS (9)
  1. CYCLOPHOSPHAMIDE [Suspect]
     Active Substance: CYCLOPHOSPHAMIDE
     Indication: Breast cancer female
     Dosage: POWDER INJECTION, 1-2 CHEMOTHERAPY- CYCLOPHOSPHAMIDE + NS
     Route: 042
  2. CYCLOPHOSPHAMIDE [Suspect]
     Active Substance: CYCLOPHOSPHAMIDE
     Dosage: 1000 MG, QD, POWDER INJECTION, THIRD CHEMOTHERAPY- CYCLOPHOSPHAMIDE (1000 MG) + NS (50 ML)
     Route: 042
     Dates: start: 20220422, end: 20220422
  3. SODIUM CHLORIDE [Suspect]
     Active Substance: SODIUM CHLORIDE
     Indication: Medication dilution
     Dosage: 1-2 CHEMOTHERAPY- CYCLOPHOSPHAMIDE + NS
     Route: 042
  4. SODIUM CHLORIDE [Suspect]
     Active Substance: SODIUM CHLORIDE
     Dosage: 50 ML, QD, THIRD CHEMOTHERAPY- CYCLOPHOSPHAMIDE (1000 MG) + NS (50 ML)
     Route: 042
     Dates: start: 20220422, end: 20220422
  5. SODIUM CHLORIDE [Suspect]
     Active Substance: SODIUM CHLORIDE
     Dosage: 1-2 CHEMOTHERAPY- DOCETAXEL + NS
     Route: 041
  6. SODIUM CHLORIDE [Suspect]
     Active Substance: SODIUM CHLORIDE
     Dosage: 250 ML, QD, THIRD CHEMOTHERAPY- DOCETAXEL (133 MG) + NS (250 ML)
     Route: 041
     Dates: start: 20220422, end: 20220422
  7. TAXOTERE [Suspect]
     Active Substance: DOCETAXEL
     Indication: Breast cancer female
     Dosage: 1-2 CHEMOTHERAPY- DOCETAXEL + NS
     Route: 041
  8. TAXOTERE [Suspect]
     Active Substance: DOCETAXEL
     Dosage: 133 MG, QD, THIRD CHEMOTHERAPY- DOCETAXEL (133 MG) + NS (250 ML)
     Route: 041
     Dates: start: 20220422, end: 20220422
  9. XIN RUI BAI [Concomitant]
     Indication: Product used for unknown indication
     Dosage: 3 MG- ON THE SECOND DAY
     Route: 058
     Dates: start: 20220423

REACTIONS (2)
  - White blood cell count decreased [Recovered/Resolved]
  - Agranulocytosis [Recovered/Resolved]

NARRATIVE: CASE EVENT DATE: 20220428
